FAERS Safety Report 25950402 (Version 1)
Quarter: 2025Q4

REPORT INFORMATION
  Report Type: Spontaneous
  Country: CA (occurrence: CA)
  Receive Date: 20251023
  Receipt Date: 20251023
  Transmission Date: 20260117
  Serious: Yes (Other)
  Sender: RANBAXY
  Company Number: CA-SUN PHARMACEUTICAL INDUSTRIES INC-2025R1-532829

PATIENT
  Age: 62 Year
  Sex: Male

DRUGS (4)
  1. MONTELUKAST [Suspect]
     Active Substance: MONTELUKAST
     Indication: Premedication
     Dosage: UNK (10 MG)
     Route: 065
  2. ASPIRIN [Suspect]
     Active Substance: ASPIRIN
     Indication: Premedication
     Dosage: UNK (650 MG (1.5 HOURS PRIOR))
     Route: 065
  3. CETIRIZINE [Suspect]
     Active Substance: CETIRIZINE HYDROCHLORIDE
     Indication: Premedication
     Dosage: UNK (10 MG (12 HOURS PRIOR))
     Route: 065
  4. PREDNISONE [Suspect]
     Active Substance: PREDNISONE
     Indication: Premedication
     Dosage: UNK 50 MG FOR 3 DOSES (12 HOURS, 6 HOURS, AND 1 HOUR PRIOR TO PROCEDURE))(
     Route: 065

REACTIONS (1)
  - Treatment failure [Unknown]
